FAERS Safety Report 4725929-6 (Version None)
Quarter: 2005Q3

REPORT INFORMATION
  Report Type: 
  Country: None (occurrence: None)
  Receive Date: 20050727
  Receipt Date: 20050720
  Transmission Date: 20060218
  Serious: Yes (Hospitalization)
  Sender: FDA-Public Use
  Company Number: US-MERCK-0507USA03191

PATIENT
  Age: 51 Year
  Sex: Female
  Weight: 107 kg

DRUGS (3)
  1. VIOXX [Suspect]
     Route: 048
     Dates: start: 20000327, end: 20000512
  2. VIOXX [Suspect]
     Route: 048
     Dates: start: 20000601
  3. GLUCOPHAGE [Concomitant]
     Route: 065

REACTIONS (6)
  - CARDIOMEGALY [None]
  - ERYTHEMA NODOSUM [None]
  - HYPERTENSION [None]
  - PERICARDIAL EFFUSION [None]
  - PHARYNGOLARYNGEAL PAIN [None]
  - PULMONARY EMBOLISM [None]
